FAERS Safety Report 5200652-2 (Version None)
Quarter: 2006Q4

REPORT INFORMATION
  Report Type: 
  Country: None (occurrence: None)
  Receive Date: 20061016
  Receipt Date: 20060707
  Transmission Date: 20070319
  Serious: No
  Sender: FDA-Public Use
  Company Number: 2006SP002631

PATIENT
  Sex: Female

DRUGS (2)
  1. LUNESTA [Suspect]
     Indication: DRUG USE FOR UNKNOWN INDICATION
     Dosage: 3 MG; HS; ORAL
     Route: 048
     Dates: start: 20060706
  2. KLONOPIN [Concomitant]

REACTIONS (6)
  - ASTHENIA [None]
  - CHILLS [None]
  - DIZZINESS [None]
  - DYSGEUSIA [None]
  - PYREXIA [None]
  - VOMITING [None]
